FAERS Safety Report 20008189 (Version 3)
Quarter: 2022Q1

REPORT INFORMATION
  Report Type: Report from Study
  Country: AU (occurrence: AU)
  Receive Date: 20211028
  Receipt Date: 20220209
  Transmission Date: 20220423
  Serious: Yes (Hospitalization, Other)
  Sender: FDA-Public Use
  Company Number: AU-BRISTOL-MYERS SQUIBB COMPANY-BMS-2021-111061

PATIENT
  Age: 78 Year
  Sex: Female
  Weight: 73 kg

DRUGS (2)
  1. NIVOLUMAB [Suspect]
     Active Substance: NIVOLUMAB
     Indication: Glioblastoma multiforme
     Dosage: 480 MG ON DAY 1 OF A 28 DAY CYCLE
     Route: 042
     Dates: start: 20210430, end: 20211008
  2. TEMOZOLOMIDE [Suspect]
     Active Substance: TEMOZOLOMIDE
     Indication: Glioblastoma multiforme
     Dosage: 280 MILLIGRAM, QD
     Route: 048
     Dates: start: 20211008, end: 20211012

REACTIONS (1)
  - Central nervous system necrosis [Recovered/Resolved with Sequelae]

NARRATIVE: CASE EVENT DATE: 20211020
